FAERS Safety Report 4840464-2 (Version None)
Quarter: 2005Q4

REPORT INFORMATION
  Report Type: 
  Country: None (occurrence: None)
  Receive Date: 20051129
  Receipt Date: 20051129
  Transmission Date: 20060501
  Serious: Yes (Hospitalization)
  Sender: FDA-Public Use
  Company Number: None

PATIENT
  Sex: Female
  Weight: 53.5244 kg

DRUGS (5)
  1. CYTOXAN [Suspect]
     Dosage: VARIES FOR EACH DRUG EVERY 14 DAYS IV
     Route: 042
     Dates: start: 20050819, end: 20051118
  2. DOXORUBICIN [Suspect]
  3. VINCRISTINE [Suspect]
  4. PREDNISONE [Suspect]
  5. RITUXIMAB [Suspect]

REACTIONS (5)
  - ABDOMINAL PAIN [None]
  - DEHYDRATION [None]
  - NEUTROPENIA [None]
  - PYREXIA [None]
  - THROMBOCYTOPENIA [None]
